FAERS Safety Report 18756500 (Version 1)
Quarter: 2021Q1

REPORT INFORMATION
  Report Type: Spontaneous
  Country: FR (occurrence: FR)
  Receive Date: 20210119
  Receipt Date: 20210119
  Transmission Date: 20210419
  Serious: Yes (Other)
  Sender: FDA-Public Use
  Company Number: FR-PFIZER INC-2021026930

PATIENT
  Age: 16 Year
  Sex: Female

DRUGS (3)
  1. TAZOCILLINE [Suspect]
     Active Substance: PIPERACILLIN SODIUM\TAZOBACTAM SODIUM
     Indication: ABSCESS INTESTINAL
     Dosage: 12 G
     Route: 042
     Dates: start: 20191206, end: 20191223
  2. TAVANIC [Suspect]
     Active Substance: LEVOFLOXACIN
     Indication: ABSCESS INTESTINAL
     Dosage: UNK
     Route: 042
     Dates: start: 20191226
  3. FLAGYL [Suspect]
     Active Substance: METRONIDAZOLE\METRONIDAZOLE HYDROCHLORIDE
     Indication: ABSCESS INTESTINAL
     Dosage: UNK
     Route: 042
     Dates: start: 20191226

REACTIONS (1)
  - Acute motor-sensory axonal neuropathy [Not Recovered/Not Resolved]

NARRATIVE: CASE EVENT DATE: 201912
